FAERS Safety Report 25611867 (Version 2)
Quarter: 2025Q3

REPORT INFORMATION
  Report Type: Spontaneous
  Country: US (occurrence: US)
  Receive Date: 20250728
  Receipt Date: 20250729
  Transmission Date: 20251021
  Serious: Yes (Other)
  Sender: PFIZER
  Company Number: US-PFIZER INC-202500149761

PATIENT
  Age: 5 Year
  Sex: Female

DRUGS (1)
  1. CRIZOTINIB [Suspect]
     Active Substance: CRIZOTINIB
     Indication: Anaplastic large cell lymphoma T- and null-cell types

REACTIONS (3)
  - Metastases to central nervous system [Recovering/Resolving]
  - Anaplastic large cell lymphoma T- and null-cell types [Recovering/Resolving]
  - Neoplasm recurrence [Recovering/Resolving]
